FAERS Safety Report 13135921 (Version 1)
Quarter: 2017Q1

REPORT INFORMATION
  Report Type: Spontaneous
  Country: IN (occurrence: IN)
  Receive Date: 20170120
  Receipt Date: 20170120
  Transmission Date: 20170428
  Serious: Yes (Hospitalization)
  Sender: FDA-Public Use
  Company Number: IN-IMPAX LABORATORIES, INC-2017-IPXL-00018

PATIENT
  Age: 15 Year
  Sex: Male

DRUGS (1)
  1. DIVALPROEX SODIUM ER [Suspect]
     Active Substance: DIVALPROEX SODIUM
     Indication: JUVENILE MYOCLONIC EPILEPSY
     Dosage: 600 MG, DAILY
     Route: 065

REACTIONS (3)
  - Pancreatitis [Recovering/Resolving]
  - Portal vein thrombosis [Recovering/Resolving]
  - Hepatic infarction [Recovering/Resolving]
